FAERS Safety Report 11447713 (Version 1)
Quarter: 2015Q3

REPORT INFORMATION
  Report Type: Spontaneous
  Country: US (occurrence: None)
  Receive Date: 20150902
  Receipt Date: 20150902
  Transmission Date: 20151125
  Serious: Yes (Other)
  Sender: FDA-Public Use
  Company Number: ADR-2015-01429

PATIENT
  Age: 62 Year
  Sex: Male

DRUGS (2)
  1. COMPOUNDED BACLOFEN 192 MCG/ML [Suspect]
     Active Substance: BACLOFEN
     Indication: SPINAL PAIN
     Dosage: 116.7 MCG/DAY; SEE B5
  2. BUPIVACAINE 8.7 MCG/ML [Suspect]
     Active Substance: BUPIVACAINE
     Indication: SPINAL PAIN
     Dosage: ^5.3 MG/DAY^; SEE B5

REACTIONS (1)
  - No therapeutic response [None]
